FAERS Safety Report 9145676 (Version 1)
Quarter: 2013Q1

REPORT INFORMATION
  Report Type: Spontaneous
  Country: US (occurrence: US)
  Receive Date: 20130307
  Receipt Date: 20130307
  Transmission Date: 20140127
  Serious: No
  Sender: FDA-Public Use
  Company Number: US-PFIZER INC-2013075442

PATIENT
  Age: 70 Year
  Sex: 0

DRUGS (1)
  1. CHANTIX [Suspect]
     Indication: SMOKING CESSATION THERAPY
     Dosage: UNK

REACTIONS (5)
  - Drug effect delayed [Unknown]
  - Headache [Unknown]
  - Nausea [Unknown]
  - Abnormal dreams [Unknown]
  - Dizziness [Unknown]
